FAERS Safety Report 8837440 (Version 1)
Quarter: 2012Q4

REPORT INFORMATION
  Report Type: Spontaneous
  Country: US (occurrence: None)
  Receive Date: 20121011
  Receipt Date: 20121011
  Transmission Date: 20130627
  Serious: Yes (Other)
  Sender: FDA-Public Use
  Company Number: None

PATIENT
  Age: 49 Year
  Sex: Male
  Weight: 79.38 kg

DRUGS (2)
  1. PRAVASTATIN [Suspect]
     Dosage: 40mg once a day po
     Route: 048
     Dates: start: 20030101, end: 20121010
  2. ZOCOR [Concomitant]

REACTIONS (2)
  - Fatigue [None]
  - Arthralgia [None]
